FAERS Safety Report 12233461 (Version 2)
Quarter: 2016Q2

REPORT INFORMATION
  Report Type: Report from Study
  Country: CA (occurrence: CA)
  Receive Date: 20160404
  Receipt Date: 20160405
  Transmission Date: 20160815
  Serious: Yes (Other)
  Sender: FDA-Public Use
  Company Number: CA-ROCHE-1736010

PATIENT
  Sex: Female

DRUGS (11)
  1. AMITRIPTYLIN [Concomitant]
     Active Substance: AMITRIPTYLINE
  2. TECTA [Concomitant]
     Active Substance: PANTOPRAZOLE MAGNESIUM
  3. ASA [Concomitant]
     Active Substance: ASPIRIN
  4. PREDNISONE. [Concomitant]
     Active Substance: PREDNISONE
  5. HYDROMORPHONE [Concomitant]
     Active Substance: HYDROMORPHONE
  6. CYTOTEC [Concomitant]
     Active Substance: MISOPROSTOL
  7. NAPROXIN [Concomitant]
     Active Substance: NAPROXEN
  8. ZOPICLONE [Concomitant]
     Active Substance: ZOPICLONE
  9. ACTEMRA [Suspect]
     Active Substance: TOCILIZUMAB
     Indication: RHEUMATOID ARTHRITIS
     Route: 058
     Dates: start: 20160203
  10. DIGOXIN. [Concomitant]
     Active Substance: DIGOXIN
  11. METOPROLOL. [Concomitant]
     Active Substance: METOPROLOL

REACTIONS (1)
  - Retinal haemorrhage [Unknown]
